FAERS Safety Report 4713402-0 (Version None)
Quarter: 2005Q3

REPORT INFORMATION
  Report Type: 
  Country: None (occurrence: None)
  Receive Date: 20050713
  Receipt Date: 20050706
  Transmission Date: 20060218
  Serious: Yes (Other)
  Sender: FDA-Public Use
  Company Number: US-JNJFOC-20040704308

PATIENT
  Sex: Female

DRUGS (1)
  1. DURAGESIC-100 [Suspect]
     Route: 062

REACTIONS (11)
  - CONTUSION [None]
  - DEVICE FAILURE [None]
  - EMOTIONAL DISTRESS [None]
  - FALL [None]
  - FOOT FRACTURE [None]
  - LACERATION [None]
  - LOSS OF CONSCIOUSNESS [None]
  - OVERDOSE [None]
  - PAIN [None]
  - SOMNOLENCE [None]
  - TOOTH FRACTURE [None]
